FAERS Safety Report 7381268-9 (Version None)
Quarter: 2011Q1

REPORT INFORMATION
  Report Type: 
  Country: None (occurrence: None)
  Receive Date: 20110329
  Receipt Date: 20110321
  Transmission Date: 20110831
  Serious: Yes (Other)
  Sender: FDA-Public Use
  Company Number: US-AMGEN-USASP2011015333

PATIENT
  Sex: Male

DRUGS (2)
  1. HECTOROL [Suspect]
     Dosage: 3 A?G, QWK
     Dates: start: 20101224, end: 20110315
  2. SENSIPAR [Suspect]
     Indication: HYPERPARATHYROIDISM SECONDARY

REACTIONS (1)
  - BLOOD PARATHYROID HORMONE ABNORMAL [None]
